FAERS Safety Report 20436011 (Version 1)
Quarter: 2022Q1

REPORT INFORMATION
  Report Type: Spontaneous
  Country: US (occurrence: US)
  Receive Date: 20220207
  Receipt Date: 20220207
  Transmission Date: 20220424
  Serious: Yes (Death, Other)
  Sender: FDA-Public Use
  Company Number: US-AMGEN-USASP2022018655

PATIENT

DRUGS (1)
  1. FILGRASTIM [Suspect]
     Active Substance: FILGRASTIM
     Indication: Infantile genetic agranulocytosis
     Route: 065

REACTIONS (18)
  - Bone marrow failure [Fatal]
  - Bacterial infection [Fatal]
  - Multiple organ dysfunction syndrome [Fatal]
  - Hepatic failure [Fatal]
  - Myelodysplastic syndrome [Fatal]
  - Acute myeloid leukaemia [Fatal]
  - Infection [Fatal]
  - Neutropenia [Recovered/Resolved]
  - Acute graft versus host disease [Unknown]
  - Chronic graft versus host disease [Unknown]
  - Pleural effusion [Unknown]
  - Diffuse large B-cell lymphoma [Unknown]
  - Decubitus ulcer [Unknown]
  - Deep vein thrombosis [Unknown]
  - Pyrexia [Unknown]
  - Gene mutation [Unknown]
  - Ejection fraction decreased [Unknown]
  - Therapy non-responder [Unknown]
